FAERS Safety Report 24153170 (Version 1)
Quarter: 2024Q3

REPORT INFORMATION
  Report Type: Spontaneous
  Country: US (occurrence: US)
  Receive Date: 20240730
  Receipt Date: 20240730
  Transmission Date: 20241017
  Serious: Yes (Other)
  Sender: FRESENIUS KABI
  Company Number: US-FreseniusKabi-FK202411569

PATIENT
  Age: 42 Year
  Sex: Female

DRUGS (2)
  1. DILAUDID [Suspect]
     Active Substance: HYDROMORPHONE HYDROCHLORIDE
     Indication: Analgesic therapy
     Dosage: DURATION OF TREATMENT: 3-4 YEARS AGO?DOSE: ASKED BUT UNKNOWN?ROUTE OF ADMINISTRATION: INTRAVENOUS
  2. KESIMPTA [Concomitant]
     Active Substance: OFATUMUMAB
     Indication: Multiple sclerosis
     Dosage: FORM OF ADMINISTRATION: INJECTION?ROUTE OF ADMINISTRATION: INTRAMUSCULAR?DOSE: UNKNOWN

REACTIONS (1)
  - Drug hypersensitivity [Recovered/Resolved]
